FAERS Safety Report 5505250-9 (Version None)
Quarter: 2007Q4

REPORT INFORMATION
  Report Type: 
  Country: None (occurrence: None)
  Receive Date: 20071031
  Receipt Date: 20071015
  Transmission Date: 20080405
  Serious: Yes (Death, Life-Threatening, Other)
  Sender: FDA-Public Use
  Company Number: 162899ISR

PATIENT
  Age: 35 Year
  Sex: Male

DRUGS (4)
  1. DIAZEPAM [Suspect]
     Dosage: 12 MG (4 MG, 3 IN 1 D) ORAL
     Route: 048
     Dates: end: 20071005
  2. TEMAZEPAM [Suspect]
     Dosage: (10 MG) ORAL
     Route: 048
     Dates: end: 20071005
  3. FENTANYL [Suspect]
     Dosage: (75 MCG, 1 HOUR) TRANSDERMAL
     Route: 062
     Dates: end: 20071005
  4. TRAMADOL [Suspect]
     Dosage: (100 MG, AS REQUIRED) ORAL
     Route: 048
     Dates: end: 20071005

REACTIONS (3)
  - CONFUSIONAL STATE [None]
  - HEPATIC ENCEPHALOPATHY [None]
  - OESOPHAGEAL HAEMORRHAGE [None]
